FAERS Safety Report 5209970-5 (Version None)
Quarter: 2006Q4

REPORT INFORMATION
  Report Type: 
  Country: None (occurrence: None)
  Receive Date: 20061128
  Receipt Date: 20060901
  Transmission Date: 20070319
  Serious: Yes (Other)
  Sender: FDA-Public Use
  Company Number: 2006106957

PATIENT
  Age: 46 Year
  Sex: Male
  Weight: 131.5431 kg

DRUGS (6)
  1. TIKOSYN [Suspect]
     Indication: ATRIAL FIBRILLATION
     Dosage: SEE IMAGE
     Route: 048
     Dates: start: 20060828
  2. VICOPROFEN [Concomitant]
  3. VALIUM [Concomitant]
  4. NEXIUM [Concomitant]
  5. REMERON [Concomitant]
  6. COUMADIN [Concomitant]

REACTIONS (1)
  - ATRIAL FIBRILLATION [None]
